FAERS Safety Report 6162219-1 (Version None)
Quarter: 2009Q2

REPORT INFORMATION
  Report Type: 
  Country: None (occurrence: None)
  Receive Date: 20090417
  Receipt Date: 20090417
  Transmission Date: 20091009
  Serious: Yes (Hospitalization, Disabling)
  Sender: FDA-Public Use
  Company Number: None

PATIENT
  Sex: Male
  Weight: 13.4 kg

DRUGS (12)
  1. IFOSFAMIDE [Suspect]
     Indication: NEOPLASM
     Dosage: 1025MG Q 20 H INJ
     Dates: start: 20090216, end: 20090220
  2. IFOSFAMIDE [Suspect]
     Indication: NEOPLASM
     Dosage: 1025MG Q 20 H INJ
     Dates: start: 20090216, end: 20090220
  3. CARBOPLATIN [Concomitant]
  4. DEXAMETHASONE [Concomitant]
  5. ETOPOSIDE [Concomitant]
  6. MESNA [Concomitant]
  7. ONDANSETRON [Concomitant]
  8. RISPERIDONE [Concomitant]
  9. BACTRIM (SULFAMETHOXAZOLE 200/TRIMETHOPRIM 400MG/5ML) [Concomitant]
  10. . [Concomitant]
  11. . [Concomitant]
  12. VANCOMYCIN HCL [Concomitant]

REACTIONS (5)
  - COORDINATION ABNORMAL [None]
  - DISTRACTIBILITY [None]
  - GAIT DISTURBANCE [None]
  - IRRITABILITY [None]
  - NEUROTOXICITY [None]
